FAERS Safety Report 9057842 (Version 4)
Quarter: 2013Q2

REPORT INFORMATION
  Report Type: Spontaneous
  Country: US (occurrence: US)
  Receive Date: 20130125
  Receipt Date: 20130409
  Transmission Date: 20140414
  Serious: Yes (Other)
  Sender: FDA-Public Use
  Company Number: US-ALEXION PHARMACEUTICALS INC.-A201202375

PATIENT
  Age: 4 Year
  Sex: Female
  Weight: 18.3 kg

DRUGS (13)
  1. SOLIRIS 300MG [Suspect]
     Indication: HAEMOLYTIC URAEMIC SYNDROME
     Dosage: 300 MG, Q2W
     Route: 042
     Dates: start: 20121101
  2. AMLODIPINE [Concomitant]
     Dosage: 1 MG, QD
     Route: 048
  3. ENALAPRIL [Concomitant]
     Dosage: 3 MG, BID
     Route: 048
  4. BECLOMETHASONE [Concomitant]
     Dosage: 2 DF, BID
     Route: 055
  5. ATOVAQUONE [Concomitant]
     Dosage: 525 MG, QD
     Route: 048
  6. STARCH [Concomitant]
     Dosage: 1 DF, PRN
     Route: 048
  7. MULTIVITAMINS [Concomitant]
     Dosage: 1 DF, QD
     Route: 048
  8. ALBUTEROL [Concomitant]
     Indication: COUGH
     Dosage: 2 DF, PRN, Q4HRS
  9. ALBUTEROL [Concomitant]
     Indication: WHEEZING
  10. ALBUTEROL [Concomitant]
     Indication: DYSPNOEA
  11. ACETAMINOPHEN [Concomitant]
     Route: 048
  12. VENTOLIN [Concomitant]
     Indication: COUGH
     Dosage: 2 DF, PRN, Q6HRS
  13. VENTOLIN [Concomitant]
     Indication: WHEEZING

REACTIONS (1)
  - Pneumonia [Recovered/Resolved]
